FAERS Safety Report 8457074-0 (Version None)
Quarter: 2012Q2

REPORT INFORMATION
  Report Type: 
  Country: None (occurrence: None)
  Receive Date: 20120614
  Receipt Date: 20120606
  Transmission Date: 20120825
  Serious: Yes (Death)
  Sender: FDA-Public Use
  Company Number: US-2012-10684

PATIENT
  Age: 21 Month
  Sex: Female

DRUGS (6)
  1. CYTARABINE [Suspect]
     Indication: PROPHYLAXIS AGAINST TRANSPLANT REJECTION
     Dosage: 800 MG MILLIGRAM(S)
  2. ALEMTUZUMAB (ALEMTUZUMAB) [Suspect]
     Indication: PROPHYLAXIS AGAINST TRANSPLANT REJECTION
     Dosage: 0.8 MG/KG
  3. METHYLPREDNISOLONE [Concomitant]
  4. MELPHALAN HYDROCHLORIDE [Suspect]
     Indication: PROPHYLAXIS AGAINST TRANSPLANT REJECTION
     Dosage: 4.6 MG MILLIGRAM(S)
  5. TACROLIMUS [Concomitant]
  6. BUSULFAN [Suspect]
     Indication: PROPHYLAXIS AGAINST TRANSPLANT REJECTION
     Dosage: 1.2 MG/KG/DOSE EVERY 6 HOURS X 16 DOSES

REACTIONS (3)
  - ARRHYTHMIA [None]
  - HEART TRANSPLANT REJECTION [None]
  - BACTERAEMIA [None]
